FAERS Safety Report 9438065 (Version 1)
Quarter: 2013Q3

REPORT INFORMATION
  Report Type: Spontaneous
  Country: US (occurrence: US)
  Receive Date: 20130802
  Receipt Date: 20130802
  Transmission Date: 20140515
  Serious: No
  Sender: FDA-Public Use
  Company Number: US-BRISTOL-MYERS SQUIBB COMPANY-16774572

PATIENT
  Age: 63 Year
  Sex: Female

DRUGS (7)
  1. COUMADIN [Suspect]
     Route: 048
     Dates: start: 2007
  2. KLOR-CON M [Interacting]
     Indication: HYPOKALAEMIA
     Dosage: KLOR-CON M10 TABS(EXTENDED RELEASE TABLET)
     Route: 048
     Dates: start: 201206
  3. METOPROLOL [Concomitant]
     Dates: start: 2007
  4. COZAAR [Concomitant]
     Dates: start: 2007
  5. CRESTOR [Concomitant]
     Dates: start: 2007
  6. MULTIVITAMIN [Concomitant]
     Dates: start: 2007
  7. COQ10 [Concomitant]
     Dates: start: 2007

REACTIONS (2)
  - International normalised ratio increased [Unknown]
  - Drug interaction [Unknown]
